FAERS Safety Report 7087271-0 (Version None)
Quarter: 2010Q4

REPORT INFORMATION
  Report Type: 
  Country: None (occurrence: None)
  Receive Date: 20101107
  Receipt Date: 20091009
  Transmission Date: 20110411
  Serious: Yes (Other)
  Sender: FDA-Public Use
  Company Number: PHHY2009US66775

PATIENT
  Sex: Female

DRUGS (1)
  1. EXJADE [Suspect]
     Dosage: 500 MG, UNK

REACTIONS (1)
  - BLINDNESS [None]
